FAERS Safety Report 5983633-0 (Version None)
Quarter: 2008Q4

REPORT INFORMATION
  Report Type: 
  Country: None (occurrence: None)
  Receive Date: 20081208
  Receipt Date: 20081204
  Transmission Date: 20090506
  Serious: No
  Sender: FDA-Public Use
  Company Number: JP-MERCK-0810USA04007

PATIENT
  Age: 83 Year
  Sex: Female
  Weight: 40 kg

DRUGS (4)
  1. HYZAAR [Suspect]
     Indication: HYPERTENSION
     Route: 048
     Dates: start: 20071022, end: 20080115
  2. CRESTOR [Concomitant]
     Route: 048
     Dates: start: 20071106
  3. ALDACTONE [Concomitant]
     Route: 048
     Dates: start: 20071022
  4. DIGOXIN [Concomitant]
     Route: 048
     Dates: start: 20071022

REACTIONS (2)
  - BLOOD CREATININE INCREASED [None]
  - BLOOD URIC ACID INCREASED [None]
